FAERS Safety Report 6812803-4 (Version None)
Quarter: 2010Q3

REPORT INFORMATION
  Report Type: 
  Country: None (occurrence: None)
  Receive Date: 20100701
  Receipt Date: 20100622
  Transmission Date: 20110219
  Serious: Yes (Hospitalization)
  Sender: FDA-Public Use
  Company Number: B0662953A

PATIENT
  Sex: Female

DRUGS (6)
  1. AUGMENTIN '125' [Suspect]
     Indication: ERYSIPELAS
     Dosage: 2TAB PER DAY
     Route: 048
     Dates: start: 20100515, end: 20100521
  2. BISOPROLOL FUMARATE [Concomitant]
  3. SIMVASTATIN [Concomitant]
  4. VALPRESSION [Concomitant]
  5. TRIATEC [Concomitant]
  6. ASPIRIN [Concomitant]

REACTIONS (3)
  - DIARRHOEA [None]
  - HEPATITIS [None]
  - RASH VESICULAR [None]
